FAERS Safety Report 8989725 (Version 7)
Quarter: 2013Q2

REPORT INFORMATION
  Report Type: Spontaneous
  Country: US (occurrence: US)
  Receive Date: 20121228
  Receipt Date: 20130425
  Transmission Date: 20140414
  Serious: Yes (Hospitalization, Other)
  Sender: FDA-Public Use
  Company Number: US-009507513-1206USA02682

PATIENT
  Sex: Female

DRUGS (7)
  1. FOSAMAX [Suspect]
     Indication: OSTEOPOROSIS
     Dosage: 10 MG, UNK
     Route: 048
     Dates: start: 199511, end: 200201
  2. FOSAMAX [Suspect]
     Indication: OSTEOPOROSIS PROPHYLAXIS
     Dosage: 70 MG, QW
     Route: 048
     Dates: start: 200201
  3. ALENDRONATE SODIUM [Suspect]
     Indication: OSTEOPOROSIS
     Dosage: 70 MG, QW
     Route: 048
     Dates: start: 20080401, end: 20091231
  4. ALENDRONATE SODIUM [Suspect]
     Indication: OSTEOPOROSIS PROPHYLAXIS
  5. ONE-A-DAY ESSENTIAL VITAMINS [Concomitant]
     Indication: ROUTINE HEALTH MAINTENANCE
     Dosage: UNK, QD
     Dates: start: 1990
  6. CALCIUM (UNSPECIFIED) (+) VITAMIN D (UNSPECIFIED) [Concomitant]
     Indication: ROUTINE HEALTH MAINTENANCE
     Dosage: 500 MG, TID
     Dates: start: 1990
  7. CYANOCOBALAMIN [Concomitant]
     Indication: ROUTINE HEALTH MAINTENANCE
     Dosage: 1000 MICROGRAM, QM
     Route: 030
     Dates: start: 1990

REACTIONS (22)
  - Femur fracture [Recovered/Resolved]
  - Intramedullary rod insertion [Unknown]
  - Fall [Unknown]
  - Haemorrhagic anaemia [Unknown]
  - Renal failure chronic [Not Recovered/Not Resolved]
  - Removal of internal fixation [Unknown]
  - Asthma [Unknown]
  - Infection [Unknown]
  - Bone disorder [Unknown]
  - Spinal column stenosis [Unknown]
  - Asthma [Not Recovered/Not Resolved]
  - Hypertension [Unknown]
  - Type 2 diabetes mellitus [Unknown]
  - Nephropathy [Unknown]
  - Diabetic vascular disorder [Unknown]
  - Pernicious anaemia [Unknown]
  - Chronic obstructive pulmonary disease [Not Recovered/Not Resolved]
  - Glaucoma [Unknown]
  - Gout [Unknown]
  - Hypercholesterolaemia [Unknown]
  - Muscle spasms [Unknown]
  - Arthralgia [Unknown]
